FAERS Safety Report 16633791 (Version 1)
Quarter: 2019Q3

REPORT INFORMATION
  Report Type: Spontaneous
  Country: JP (occurrence: JP)
  Receive Date: 20190725
  Receipt Date: 20190725
  Transmission Date: 20191004
  Serious: Yes (Hospitalization)
  Sender: FDA-Public Use
  Company Number: PHJP2019JP009502

PATIENT
  Age: 59 Year
  Sex: Male

DRUGS (2)
  1. NILOTINIB [Suspect]
     Active Substance: NILOTINIB
     Indication: CHRONIC MYELOID LEUKAEMIA
     Dosage: 300 MG, QD
     Route: 048
  2. ASPIRIN. [Concomitant]
     Active Substance: ASPIRIN
     Indication: THROMBOSIS PROPHYLAXIS
     Dosage: 100 MG, QD
     Route: 048

REACTIONS (10)
  - Dizziness [Unknown]
  - Diplopia [Unknown]
  - Ataxia [Unknown]
  - Vomiting [Unknown]
  - Brain stem infarction [Unknown]
  - Thrombotic cerebral infarction [Unknown]
  - Hemiplegia [Unknown]
  - Dyslalia [Unknown]
  - Nausea [Unknown]
  - Locked-in syndrome [Unknown]
